FAERS Safety Report 4841369-3 (Version None)
Quarter: 2005Q4

REPORT INFORMATION
  Report Type: 
  Country: None (occurrence: None)
  Receive Date: 20051130
  Receipt Date: 20051121
  Transmission Date: 20060501
  Serious: Yes (Death, Disabling)
  Sender: FDA-Public Use
  Company Number: US-MERCK-0511USA03606

PATIENT
  Sex: Male

DRUGS (1)
  1. VIOXX [Suspect]
     Route: 048
     Dates: start: 19990501, end: 20040930

REACTIONS (7)
  - ACUTE MYOCARDIAL INFARCTION [None]
  - CEREBROVASCULAR ACCIDENT [None]
  - DEATH [None]
  - HEPATOCELLULAR DAMAGE [None]
  - MULTI-ORGAN DISORDER [None]
  - PULMONARY EMBOLISM [None]
  - RENAL DISORDER [None]
